FAERS Safety Report 24072600 (Version 1)
Quarter: 2024Q3

REPORT INFORMATION
  Report Type: Spontaneous
  Country: US (occurrence: US)
  Receive Date: 20240710
  Receipt Date: 20240710
  Transmission Date: 20241017
  Serious: Yes (Death)
  Sender: AMGEN
  Company Number: US-AMGEN-USASP2024133510

PATIENT
  Age: 67 Year
  Sex: Male

DRUGS (5)
  1. INFLIXIMAB [Suspect]
     Active Substance: INFLIXIMAB
     Indication: Diarrhoea
     Dosage: 5 MILLIGRAM/KILOGRAM
     Route: 042
  2. PREDNISONE [Suspect]
     Active Substance: PREDNISONE
     Indication: Diarrhoea
     Dosage: 60 MILLIGRAM, QD
     Route: 048
  3. SIPULEUCEL-T [Concomitant]
     Active Substance: SIPULEUCEL-T
     Dosage: UNK
     Route: 065
  4. MEDROL [Concomitant]
     Active Substance: METHYLPREDNISOLONE
     Indication: Diarrhoea
     Dosage: 24 MILLIGRAM, QD
     Route: 065
  5. MEDROL [Concomitant]
     Active Substance: METHYLPREDNISOLONE
     Dosage: 4 MILLIGRAM, QD
     Route: 065

REACTIONS (3)
  - Prostate cancer stage IV [Fatal]
  - Drug effective for unapproved indication [Unknown]
  - Off label use [Unknown]
